APPROVED DRUG PRODUCT: VINCRISTINE SULFATE
Active Ingredient: VINCRISTINE SULFATE
Strength: 1MG/ML
Dosage Form/Route: INJECTABLE;INJECTION
Application: A070411 | Product #001
Applicant: ABRAXIS PHARMACEUTICAL PRODUCTS
Approved: Sep 10, 1986 | RLD: No | RS: No | Type: DISCN